FAERS Safety Report 19305535 (Version 1)
Quarter: 2021Q2

REPORT INFORMATION
  Report Type: Spontaneous
  Country: US (occurrence: US)
  Receive Date: 20210526
  Receipt Date: 20210526
  Transmission Date: 20210717
  Serious: No
  Sender: FDA-Public Use
  Company Number: US-DRREDDYS-USA/USA/21/0135692

PATIENT
  Sex: Female

DRUGS (1)
  1. SUMATRIPTAN INJECTION USP [Suspect]
     Active Substance: SUMATRIPTAN
     Indication: PRODUCT USED FOR UNKNOWN INDICATION
     Dosage: FORM STRENGTH 6 MG/0.5 ML.

REACTIONS (2)
  - Product dose omission issue [Unknown]
  - Product quality issue [Unknown]
